FAERS Safety Report 7161268-4 (Version None)
Quarter: 2010Q4

REPORT INFORMATION
  Report Type: 
  Country: None (occurrence: None)
  Receive Date: 20101210
  Receipt Date: 20101210
  Transmission Date: 20110411
  Serious: Yes (Other)
  Sender: FDA-Public Use
  Company Number: None

PATIENT
  Age: 25 Year
  Sex: Male
  Weight: 72.5755 kg

DRUGS (2)
  1. CYMBALTA [Suspect]
     Dosage: 60 MG ONCE DAILY PO
     Route: 048
     Dates: start: 20100601, end: 20101201
  2. CYMBALTA [Suspect]
     Dosage: 30 MG ONCE DAILY PO
     Route: 048

REACTIONS (3)
  - DISORIENTATION [None]
  - INFLUENZA LIKE ILLNESS [None]
  - PRESYNCOPE [None]
